FAERS Safety Report 6273052-4 (Version None)
Quarter: 2009Q3

REPORT INFORMATION
  Report Type: 
  Country: None (occurrence: None)
  Receive Date: 20090715
  Receipt Date: 20090715
  Transmission Date: 20100115
  Serious: Yes (Other)
  Sender: FDA-Public Use
  Company Number: None

PATIENT
  Age: 39 Year
  Sex: Male
  Weight: 98.4306 kg

DRUGS (1)
  1. BUPROPION HCL [Suspect]
     Indication: ATTENTION DEFICIT/HYPERACTIVITY DISORDER
     Dosage: 150 MG 1X DAY PO
     Route: 048
     Dates: start: 20090704, end: 20090714

REACTIONS (4)
  - CHEST DISCOMFORT [None]
  - PAIN [None]
  - PRODUCT SUBSTITUTION ISSUE [None]
  - THROAT TIGHTNESS [None]
